FAERS Safety Report 7024341-7 (Version None)
Quarter: 2010Q4

REPORT INFORMATION
  Report Type: 
  Country: None (occurrence: None)
  Receive Date: 20101001
  Receipt Date: 20100922
  Transmission Date: 20110411
  Serious: Yes (Other)
  Sender: FDA-Public Use
  Company Number: GB-PFIZER INC-2010120655

PATIENT
  Age: 24 Year
  Sex: Female

DRUGS (3)
  1. PROVERA [Suspect]
     Indication: OFF LABEL USE
     Dosage: 10 MG, UNK
  2. PROVERA [Suspect]
     Indication: OVARIAN CYST
  3. FOLIC ACID [Concomitant]
     Dosage: UNK

REACTIONS (2)
  - MENORRHAGIA [None]
  - MOUTH HAEMORRHAGE [None]
